FAERS Safety Report 7722409-0 (Version None)
Quarter: 2011Q3

REPORT INFORMATION
  Report Type: 
  Country: None (occurrence: None)
  Receive Date: 20110831
  Receipt Date: 20110826
  Transmission Date: 20111222
  Serious: Yes (Hospitalization, Other)
  Sender: FDA-Public Use
  Company Number: US-PFIZER INC-2010049218

PATIENT
  Sex: Female
  Weight: 74.83 kg

DRUGS (16)
  1. NEURONTIN [Suspect]
     Indication: POST HERPETIC NEURALGIA
     Dosage: UNK
     Route: 048
     Dates: start: 20090701, end: 20090701
  2. HYDROCODONE [Concomitant]
     Indication: BACK PAIN
     Dosage: UNK
  3. XANAX [Concomitant]
     Indication: PANIC ATTACK
     Dosage: UNK
  4. AMBIEN [Concomitant]
     Indication: SLEEP DISORDER
     Dosage: UNK
  5. FISH OIL [Concomitant]
     Indication: IRRITABLE BOWEL SYNDROME
     Dosage: UNK
  6. LYRICA [Suspect]
     Indication: MIGRAINE
     Dosage: 50 MG, 1X/DAY
     Route: 048
     Dates: start: 20090801
  7. LYRICA [Suspect]
     Indication: FIBROMYALGIA
     Dosage: 50 MG, 2X/DAY
  8. OXYCODONE [Concomitant]
  9. XANAX [Concomitant]
     Indication: SLEEP DISORDER
  10. LAMICTAL [Suspect]
     Indication: DEPRESSION
     Dosage: 25MG DAILY
     Dates: start: 20110101
  11. LAMICTAL [Suspect]
     Dosage: 100MG DAILY
     Dates: end: 20110502
  12. LAMICTAL [Suspect]
     Dosage: 50MG DAILY
  13. LIDODERM [Concomitant]
     Indication: HERPES ZOSTER
     Dosage: UNK
  14. CYMBALTA [Concomitant]
     Indication: DEPRESSION
     Dosage: UNK
  15. OXYCODONE [Concomitant]
     Indication: BACK PAIN
     Dosage: 5 MG, 2X/DAY
  16. HYDROCODONE [Concomitant]

REACTIONS (10)
  - BLOOD URINE PRESENT [None]
  - MOOD ALTERED [None]
  - DYSURIA [None]
  - HALLUCINATION [None]
  - BLOOD GLUCOSE INCREASED [None]
  - URINARY RETENTION [None]
  - DEPRESSION SUICIDAL [None]
  - DIARRHOEA [None]
  - FEELING DRUNK [None]
  - DEHYDRATION [None]
